FAERS Safety Report 5006253-3 (Version None)
Quarter: 2006Q2

REPORT INFORMATION
  Report Type: 
  Country: None (occurrence: None)
  Receive Date: 20060515
  Receipt Date: 20060428
  Transmission Date: 20061013
  Serious: Yes (Other)
  Sender: FDA-Public Use
  Company Number: DSA_60860_2006

PATIENT
  Age: 31 Month
  Sex: Female
  Weight: 11.3399 kg

DRUGS (2)
  1. DIASTAT [Suspect]
     Indication: CONVULSION
     Dosage: 5 MG PRN RC
     Route: 054
  2. TEGRETOL [Concomitant]

REACTIONS (3)
  - CONDITION AGGRAVATED [None]
  - CONVULSION [None]
  - PHARMACEUTICAL PRODUCT COMPLAINT [None]
